FAERS Safety Report 4606079-6 (Version None)
Quarter: 2005Q2

REPORT INFORMATION
  Report Type: 
  Country: None (occurrence: None)
  Receive Date: 20050303
  Receipt Date: 20041109
  Transmission Date: 20051028
  Serious: No
  Sender: FDA-Public Use
  Company Number: 200420982BWH

PATIENT
  Age: 64 Year
  Sex: Male

DRUGS (2)
  1. LEVITRA [Suspect]
     Indication: ERECTILE DYSFUNCTION
     Dosage: 10 MG, ONCE, ORAL
     Route: 048
     Dates: start: 20041106
  2. SINUTAB ^WARNER CHILCOTT^ [Concomitant]

REACTIONS (1)
  - ERECTILE DYSFUNCTION [None]
